FAERS Safety Report 17579127 (Version 1)
Quarter: 2020Q1

REPORT INFORMATION
  Report Type: Spontaneous
  Country: US (occurrence: US)
  Receive Date: 20200325
  Receipt Date: 20200325
  Transmission Date: 20200409
  Serious: No
  Sender: FDA-Public Use
  Company Number: US-ELI_LILLY_AND_COMPANY-US202003010089

PATIENT
  Sex: Female

DRUGS (3)
  1. TYLENOL [Concomitant]
     Active Substance: ACETAMINOPHEN
     Indication: SEASONAL ALLERGY
  2. HUMULIN N [Suspect]
     Active Substance: INSULIN HUMAN
     Indication: TYPE 2 DIABETES MELLITUS
     Dosage: 10 U, EACH MORNING
     Route: 058
     Dates: start: 201911
  3. HUMULIN N [Suspect]
     Active Substance: INSULIN HUMAN
     Dosage: 28 U, EACH EVENING
     Route: 058

REACTIONS (3)
  - Hunger [Unknown]
  - Headache [Recovered/Resolved]
  - Seasonal allergy [Unknown]
